FAERS Safety Report 22397159 (Version 2)
Quarter: 2025Q2

REPORT INFORMATION
  Report Type: Report from Study
  Country: US (occurrence: US)
  Receive Date: 20230602
  Receipt Date: 20250422
  Transmission Date: 20250716
  Serious: Yes (Other)
  Sender: ABBVIE
  Company Number: US-ABBVIE-5187527

PATIENT
  Sex: Female

DRUGS (1)
  1. HUMIRA [Suspect]
     Active Substance: ADALIMUMAB
     Indication: Psoriasis
     Route: 058
     Dates: start: 20170602

REACTIONS (3)
  - Cardiac failure [Not Recovered/Not Resolved]
  - Gait inability [Not Recovered/Not Resolved]
  - Blindness [Not Recovered/Not Resolved]
